FAERS Safety Report 9779993 (Version 6)
Quarter: 2015Q3

REPORT INFORMATION
  Report Type: Spontaneous
  Country: US (occurrence: US)
  Receive Date: 20131223
  Receipt Date: 20150720
  Transmission Date: 20151125
  Serious: Yes (Hospitalization, Other)
  Sender: FDA-Public Use
  Company Number: US-009507513-1312USA009084

PATIENT
  Sex: Female
  Weight: 82.54 kg

DRUGS (11)
  1. ALENDRONATE SODIUM. [Suspect]
     Active Substance: ALENDRONATE SODIUM
     Indication: OSTEOPOROSIS
     Dosage: 35 MG, UNK
     Route: 048
     Dates: start: 20090420, end: 20100405
  2. ALENDRONATE SODIUM. [Suspect]
     Active Substance: ALENDRONATE SODIUM
     Dosage: 70 MG, UNK
     Route: 048
     Dates: start: 20100511, end: 20100810
  3. ACTONEL [Suspect]
     Active Substance: RISEDRONATE SODIUM
     Indication: OSTEOPOROSIS
     Dosage: UNK
     Route: 048
     Dates: start: 2001, end: 200411
  4. ALENDRONATE SODIUM. [Suspect]
     Active Substance: ALENDRONATE SODIUM
     Indication: OSTEOPOROSIS
     Dosage: 70 MG, UNK
     Route: 048
     Dates: start: 20080902, end: 200810
  5. FOSAMAX [Suspect]
     Active Substance: ALENDRONATE SODIUM
     Indication: OSTEOPOROSIS
     Dosage: 70 MG, QW
     Route: 048
     Dates: start: 200411, end: 20090420
  6. ALENDRONATE SODIUM. [Suspect]
     Active Substance: ALENDRONATE SODIUM
     Dosage: 70 UNK, UNK
     Route: 048
     Dates: start: 20080222, end: 20080731
  7. ALENDRONATE SODIUM. [Suspect]
     Active Substance: ALENDRONATE SODIUM
     Dosage: 70 MG, QW
     Route: 048
     Dates: start: 20081028, end: 20090309
  8. CALCIUM (UNSPECIFIED) [Concomitant]
     Active Substance: CALCIUM
     Indication: OSTEOPOROSIS
     Dosage: 100 MG, BID/DAILY
     Route: 048
     Dates: start: 1999
  9. ALENDRONATE SODIUM. [Suspect]
     Active Substance: ALENDRONATE SODIUM
     Indication: OSTEOPOROSIS
     Dosage: 70 MG, UNK
     Route: 048
     Dates: start: 20101108
  10. VITAMIN D [Concomitant]
     Active Substance: CHOLECALCIFEROL
     Indication: OSTEOPOROSIS
     Dosage: 50000 IU, QW/DAILY
     Route: 048
     Dates: start: 1999
  11. ALENDRONATE SODIUM. [Suspect]
     Active Substance: ALENDRONATE SODIUM
     Indication: OSTEOPOROSIS
     Dosage: 70 MG, UNK
     Route: 048
     Dates: start: 20071020, end: 20080122

REACTIONS (42)
  - Internal fixation of fracture [Unknown]
  - Laceration [Unknown]
  - Back pain [Unknown]
  - Depression [Unknown]
  - Joint dislocation reduction [Unknown]
  - Hip arthroplasty [Unknown]
  - Cardiac disorder [Unknown]
  - Hyperlipidaemia [Unknown]
  - Chronic fatigue syndrome [Unknown]
  - Asthenia [Unknown]
  - Pain in extremity [Unknown]
  - Suicidal ideation [Unknown]
  - Essential hypertension [Unknown]
  - Dizziness [Unknown]
  - Nausea [Unknown]
  - Femoral neck fracture [Unknown]
  - Tricuspid valve incompetence [Unknown]
  - Paraesthesia [Unknown]
  - Fall [Unknown]
  - Intramedullary rod insertion [Unknown]
  - Joint dislocation [Unknown]
  - Knee arthroplasty [Unknown]
  - Vitamin D deficiency [Unknown]
  - Medical device removal [Unknown]
  - Haemorrhagic anaemia [Unknown]
  - Femur fracture [Unknown]
  - Intramedullary rod insertion [Unknown]
  - Femur fracture [Unknown]
  - Orthostatic hypotension [Unknown]
  - Seasonal allergy [Unknown]
  - Wrist fracture [Unknown]
  - Atrial fibrillation [Unknown]
  - Breast disorder [Unknown]
  - Arthralgia [Unknown]
  - Cardiac valve disease [Unknown]
  - Ejection fraction abnormal [Unknown]
  - Dizziness [Unknown]
  - Tonsillar disorder [Unknown]
  - Arthritis [Unknown]
  - Drug ineffective [Unknown]
  - Obesity [Unknown]
  - Hypothermia [Unknown]

NARRATIVE: CASE EVENT DATE: 2005
